FAERS Safety Report 8402781-9 (Version None)
Quarter: 2012Q2

REPORT INFORMATION
  Report Type: 
  Country: None (occurrence: None)
  Receive Date: 20120601
  Receipt Date: 20120518
  Transmission Date: 20120825
  Serious: Yes (Other)
  Sender: FDA-Public Use
  Company Number: MX-ROCHE-1071320

PATIENT

DRUGS (1)
  1. AVASTIN [Suspect]
     Indication: RETINOPATHY OF PREMATURITY

REACTIONS (7)
  - CEREBRAL PALSY [None]
  - APNOEA [None]
  - RETINAL DETACHMENT [None]
  - RETINAL ISCHAEMIA [None]
  - PSYCHOMOTOR RETARDATION [None]
  - RESPIRATORY DISTRESS [None]
  - VITREOUS HAEMORRHAGE [None]
